FAERS Safety Report 7919119-3 (Version None)
Quarter: 2011Q4

REPORT INFORMATION
  Report Type: 
  Country: None (occurrence: None)
  Receive Date: 20111116
  Receipt Date: 20111028
  Transmission Date: 20120403
  Serious: Yes (Hospitalization)
  Sender: FDA-Public Use
  Company Number: PHHO2011DE018791

PATIENT
  Sex: Female
  Weight: 45.8 kg

DRUGS (2)
  1. LBH589 [Suspect]
     Indication: GASTROINTESTINAL STROMAL TUMOUR
     Dosage: 20 MG EVERY SECOND DAY
     Route: 048
     Dates: start: 20110714, end: 20111024
  2. GLEEVEC [Suspect]
     Indication: GASTROINTESTINAL STROMAL TUMOUR
     Dosage: 400 MG, QD
     Route: 048
     Dates: start: 20110707, end: 20111024

REACTIONS (3)
  - NEOPLASM MALIGNANT [None]
  - HYPERTENSIVE CRISIS [None]
  - NEOPLASM PROGRESSION [None]
